FAERS Safety Report 5078201-1 (Version None)
Quarter: 2006Q3

REPORT INFORMATION
  Report Type: 
  Country: None (occurrence: None)
  Receive Date: 20060811
  Receipt Date: 20060601
  Transmission Date: 20061208
  Serious: Yes (Hospitalization)
  Sender: FDA-Public Use
  Company Number: BE-AMGEN-UK181492

PATIENT
  Sex: Male
  Weight: 56 kg

DRUGS (22)
  1. PALIFERMIN [Suspect]
     Indication: MUCOSAL INFLAMMATION
     Route: 040
     Dates: start: 20051107, end: 20051117
  2. ARACYTIN [Concomitant]
     Route: 042
     Dates: start: 20051110, end: 20051113
  3. ETOPOSIDE [Concomitant]
     Route: 042
     Dates: start: 20051110, end: 20051113
  4. CARMUSTINE [Concomitant]
  5. CYCLOPHOSPHAMIDE [Concomitant]
  6. OFLOXACIN [Concomitant]
     Route: 048
     Dates: start: 20051107, end: 20051112
  7. FLUCONAZOLE [Concomitant]
     Route: 048
     Dates: start: 20051107, end: 20051128
  8. POTASSIUM CHLORIDE [Concomitant]
     Route: 042
     Dates: start: 20051112, end: 20051204
  9. MAGNESIUM [Concomitant]
     Route: 042
     Dates: start: 20051113, end: 20051204
  10. POLARAMINE [Concomitant]
     Route: 042
     Dates: start: 20051114, end: 20051204
  11. FUROSEMIDE [Concomitant]
     Route: 042
     Dates: start: 20051111, end: 20051209
  12. PHOSPHATE-SANDOZ [Concomitant]
     Route: 042
     Dates: start: 20041118, end: 20051204
  13. ACYCLOVIR [Concomitant]
     Route: 042
     Dates: start: 20051118
  14. SOLU-MEDROL [Concomitant]
     Route: 042
     Dates: start: 20051125, end: 20051128
  15. DIPROSONE [Concomitant]
     Route: 065
     Dates: start: 20051123, end: 20051129
  16. SULFADIAZINE [Concomitant]
     Route: 065
     Dates: start: 20051123, end: 20051129
  17. PANTOZOL [Concomitant]
     Route: 048
  18. ZOFRAN [Concomitant]
     Route: 042
     Dates: start: 20051110
  19. MELPHALAN [Concomitant]
     Route: 042
     Dates: start: 20051114, end: 20051114
  20. NADROPARIN CALCIUM [Concomitant]
     Route: 058
  21. BEFACT [Concomitant]
     Route: 048
  22. CEFEPIME [Concomitant]
     Route: 042
     Dates: start: 20051112, end: 20051125

REACTIONS (8)
  - CYTOMEGALOVIRUS INFECTION [None]
  - DERMATITIS EXFOLIATIVE [None]
  - DRUG TOXICITY [None]
  - FLUID RETENTION [None]
  - OEDEMA [None]
  - PRURITUS [None]
  - PYREXIA [None]
  - RASH [None]
